FAERS Safety Report 7719345-2 (Version None)
Quarter: 2011Q3

REPORT INFORMATION
  Report Type: 
  Country: None (occurrence: None)
  Receive Date: 20110830
  Receipt Date: 20110824
  Transmission Date: 20111222
  Serious: Yes (Hospitalization, Other)
  Sender: FDA-Public Use
  Company Number: US-ALEXION-A201101199

PATIENT
  Sex: Female

DRUGS (10)
  1. LANTUS [Concomitant]
     Indication: DIABETES MELLITUS
     Dosage: 20 UNITS UNK
  2. FERROUS SULFATE TAB [Concomitant]
     Dosage: 325 MG QD
  3. LISINOPRIL [Concomitant]
     Dosage: 40 MG QD
  4. LASIX [Concomitant]
     Dosage: 80 MG BID
  5. VALSARTAN [Concomitant]
  6. METOPROLOL TARTRATE [Concomitant]
  7. AMLODIPINE [Concomitant]
  8. SOLIRIS [Suspect]
     Indication: PAROXYSMAL NOCTURNAL HAEMOGLOBINURIA
     Dosage: 600 MG QW
     Route: 042
     Dates: start: 20110721
  9. REGULAR INSULIN [Concomitant]
     Indication: DIABETES MELLITUS
     Dosage: SLIDING SCALE UNK
  10. POTASSIUM CHLORIDE [Concomitant]
     Dosage: 20 MG QD

REACTIONS (7)
  - GENERALISED OEDEMA [None]
  - NEPHROTIC SYNDROME [None]
  - PNEUMONIA [None]
  - DYSPNOEA [None]
  - ANAEMIA [None]
  - PLEURAL EFFUSION [None]
  - RENAL INJURY [None]
